FAERS Safety Report 9335598 (Version 1)
Quarter: 2013Q2

REPORT INFORMATION
  Report Type: Spontaneous
  Country: AU (occurrence: AU)
  Receive Date: 20130605
  Receipt Date: 20130605
  Transmission Date: 20140414
  Serious: Yes (Hospitalization)
  Sender: FDA-Public Use
  Company Number: AU-009507513-1306AUS000403

PATIENT
  Sex: Male

DRUGS (3)
  1. PEGINTERFERON ALFA-2B [Suspect]
     Dosage: UNK
  2. RIBAVIRIN [Suspect]
     Dosage: UNK
  3. TELAPREVIR [Suspect]
     Dosage: DOSE UNSPECIFIED
     Route: 048

REACTIONS (1)
  - Skin reaction [Unknown]
